FAERS Safety Report 9614353 (Version 2)
Quarter: 2013Q4

REPORT INFORMATION
  Report Type: Spontaneous
  Country: US (occurrence: US)
  Receive Date: 20131011
  Receipt Date: 20131015
  Transmission Date: 20140711
  Serious: No
  Sender: FDA-Public Use
  Company Number: US-JNJFOC-20131003353

PATIENT
  Age: 18 Year
  Sex: Male

DRUGS (3)
  1. INVEGA SUSTENNA [Suspect]
     Indication: SCHIZOAFFECTIVE DISORDER BIPOLAR TYPE
     Route: 030
     Dates: start: 20121219
  2. CLOZARIL [Concomitant]
     Indication: PSYCHOTIC DISORDER
     Route: 048
  3. LITHIUM [Concomitant]
     Indication: BIPOLAR DISORDER
     Route: 048

REACTIONS (3)
  - Condition aggravated [Not Recovered/Not Resolved]
  - Increased appetite [Not Recovered/Not Resolved]
  - Weight increased [Unknown]
